FAERS Safety Report 16478674 (Version 4)
Quarter: 2020Q3

REPORT INFORMATION
  Report Type: Spontaneous
  Country: US (occurrence: US)
  Receive Date: 20190626
  Receipt Date: 20200716
  Transmission Date: 20201102
  Serious: Yes (Other)
  Sender: FDA-Public Use
  Company Number: US-PFIZER INC-2019272158

PATIENT
  Age: 85 Year
  Sex: Female

DRUGS (2)
  1. IBRANCE [Suspect]
     Active Substance: PALBOCICLIB
     Indication: BREAST CANCER FEMALE
     Dosage: 125 MG, DAILY [DAILY 21 DAYS, OFF 7 DAY]
     Route: 048
     Dates: start: 20190601
  2. LETROZOLE. [Concomitant]
     Active Substance: LETROZOLE
     Dosage: UNK

REACTIONS (6)
  - Taste disorder [Unknown]
  - Asthenia [Unknown]
  - Pneumonia [Unknown]
  - Feeling abnormal [Recovering/Resolving]
  - Decreased appetite [Unknown]
  - Memory impairment [Unknown]
